FAERS Safety Report 11617347 (Version 1)
Quarter: 2015Q4

REPORT INFORMATION
  Report Type: Report from Study
  Country: CN (occurrence: CN)
  Receive Date: 20151009
  Receipt Date: 20151009
  Transmission Date: 20160304
  Serious: Yes (Hospitalization)
  Sender: FDA-Public Use
  Company Number: CN-BAYER-2015-435785

PATIENT
  Age: 42 Year
  Sex: Female
  Weight: 49 kg

DRUGS (1)
  1. ASPIRIN. [Suspect]
     Active Substance: ASPIRIN
     Indication: COLORECTAL CANCER RECURRENT
     Dosage: 200 MG, QD
     Route: 048
     Dates: start: 20150426, end: 20150503

REACTIONS (2)
  - Neuropathy peripheral [Not Recovered/Not Resolved]
  - Urinary retention [Recovered/Resolved]

NARRATIVE: CASE EVENT DATE: 20150427
